FAERS Safety Report 9231392 (Version 3)
Quarter: 2013Q4

REPORT INFORMATION
  Report Type: Report from Study
  Country: US (occurrence: US)
  Receive Date: 20130415
  Receipt Date: 20131114
  Transmission Date: 20140711
  Serious: Yes (Hospitalization, Other)
  Sender: FDA-Public Use
  Company Number: US-ASTRAZENECA-2012SE94516

PATIENT
  Age: 20071 Day
  Sex: Female

DRUGS (15)
  1. AZD6140 [Suspect]
     Indication: CORONARY ARTERY DISEASE
     Route: 048
     Dates: start: 20120927, end: 20121205
  2. AZD6140 [Suspect]
     Indication: CORONARY ARTERY DISEASE
     Route: 048
     Dates: start: 20130204
  3. CYCLOBENZAPRINE [Concomitant]
     Indication: MUSCLE SPASMS
     Route: 048
  4. CYCLOBENZAPRINE [Concomitant]
     Indication: INTERVERTEBRAL DISC PROTRUSION
     Route: 048
  5. FOLIC ACID [Concomitant]
     Indication: VITAMIN SUPPLEMENTATION
     Route: 048
     Dates: end: 20121130
  6. LISINOPRIL [Concomitant]
     Indication: HYPERTENSION
     Route: 048
  7. METHOTREXATE [Concomitant]
     Indication: RHEUMATOID ARTHRITIS
     Route: 048
     Dates: end: 20121130
  8. AMLODIPINE [Concomitant]
     Indication: HYPERTENSION
     Route: 048
  9. METOPROLOL [Concomitant]
     Indication: HYPERTENSION
     Route: 048
  10. HYDROMORPHONE [Concomitant]
     Indication: RHEUMATOID ARTHRITIS
     Route: 048
  11. LIPITOR [Concomitant]
     Indication: HYPERCHOLESTEROLAEMIA
     Route: 048
  12. ASA [Concomitant]
     Route: 048
     Dates: end: 20121211
  13. ASA [Concomitant]
     Route: 048
     Dates: start: 20121214, end: 20130117
  14. ASA [Concomitant]
     Route: 048
     Dates: start: 20130118, end: 20130118
  15. ASA [Concomitant]
     Route: 048
     Dates: start: 20130120

REACTIONS (1)
  - Peptic ulcer haemorrhage [Recovered/Resolved]
